FAERS Safety Report 24399741 (Version 3)
Quarter: 2024Q4

REPORT INFORMATION
  Report Type: Report from Study
  Country: CA (occurrence: CA)
  Receive Date: 20241005
  Receipt Date: 20241217
  Transmission Date: 20250114
  Serious: Yes (Other)
  Sender: BIOCON
  Company Number: CA-BIOCON BIOLOGICS LIMITED-BBL2024005744

PATIENT

DRUGS (3)
  1. HULIO [Suspect]
     Active Substance: ADALIMUMAB-FKJP
     Indication: Psoriasis
     Dosage: 40MG SC EVERY OTHER WEEK
     Route: 058
     Dates: start: 20230707
  2. HULIO [Suspect]
     Active Substance: ADALIMUMAB-FKJP
     Dosage: 40 MILLIGRAM, Q2W (EVERY OTHER WEEK)
     Route: 058
  3. METHOTREXATE [Concomitant]
     Active Substance: METHOTREXATE
     Indication: Psoriasis
     Dosage: 2.5MG PO WEEKLY
     Route: 048

REACTIONS (8)
  - Pulmonary congestion [Unknown]
  - Pneumonia [Recovered/Resolved]
  - Haemoptysis [Unknown]
  - Chills [Unknown]
  - Productive cough [Recovered/Resolved]
  - Hypersensitivity [Unknown]
  - Dyspnoea [Unknown]
  - Circumstance or information capable of leading to medication error [Unknown]

NARRATIVE: CASE EVENT DATE: 20240923
